FAERS Safety Report 24142973 (Version 1)
Quarter: 2024Q3

REPORT INFORMATION
  Report Type: Spontaneous
  Country: US (occurrence: US)
  Receive Date: 20240726
  Receipt Date: 20240726
  Transmission Date: 20241016
  Serious: No
  Sender: Haleon PLC
  Company Number: US-HALEON-2188718

PATIENT
  Sex: Female

DRUGS (2)
  1. ABREVA [Suspect]
     Active Substance: DOCOSANOL
     Indication: Chapped lips
     Dosage: 1 - LOZENGE (LOZ)
     Dates: start: 20240722, end: 20240722
  2. ABREVA [Suspect]
     Active Substance: DOCOSANOL
     Indication: Lip pain

REACTIONS (1)
  - Oral discomfort [Recovered/Resolved]

NARRATIVE: CASE EVENT DATE: 20240722
